FAERS Safety Report 9282600 (Version 3)
Quarter: 2018Q1

REPORT INFORMATION
  Report Type: Spontaneous
  Country: US (occurrence: US)
  Receive Date: 20130510
  Receipt Date: 20180323
  Transmission Date: 20180509
  Serious: Yes (Hospitalization, Other)
  Sender: FDA-Public Use
  Company Number: CHPA2013US007835

PATIENT
  Age: 34 Year
  Sex: Female

DRUGS (3)
  1. EXCEDRIN [Suspect]
     Active Substance: ACETAMINOPHEN\ASPIRIN\CAFFEINE
     Indication: PRODUCT USED FOR UNKNOWN INDICATION
     Dosage: UNK
     Route: 048
     Dates: start: 201106, end: 201106
  2. ACETAMINOPHEN. [Suspect]
     Active Substance: ACETAMINOPHEN
     Indication: PRODUCT USED FOR UNKNOWN INDICATION
     Dosage: UNK
     Route: 065
  3. TYLENOL EXTRA STRENGTH [Suspect]
     Active Substance: ACETAMINOPHEN
     Indication: INFLUENZA LIKE ILLNESS
     Dosage: EVERY 4-6 WEEKS, 6-8 PAR DAY
     Route: 065
     Dates: start: 20110626, end: 20110630

REACTIONS (10)
  - Urine output decreased [Unknown]
  - Overdose [Unknown]
  - Respiratory failure [Unknown]
  - Injury [Unknown]
  - Hepatic encephalopathy [Unknown]
  - Hepatic necrosis [Unknown]
  - Vomiting [Unknown]
  - Acute hepatic failure [Unknown]
  - Hepatitis fulminant [Unknown]
  - Malaise [Unknown]

NARRATIVE: CASE EVENT DATE: 20110630
